FAERS Safety Report 21205232 (Version 1)
Quarter: 2022Q3

REPORT INFORMATION
  Report Type: Spontaneous
  Country: IN (occurrence: IN)
  Receive Date: 20220812
  Receipt Date: 20220812
  Transmission Date: 20221027
  Serious: Yes (Hospitalization)
  Sender: FDA-Public Use
  Company Number: IN-Nexus Pharma-000102

PATIENT
  Age: 23 Year
  Sex: Male

DRUGS (2)
  1. COLISTIMETHATE SODIUM [Suspect]
     Active Substance: COLISTIMETHATE SODIUM
     Indication: Acinetobacter infection
     Dosage: 9 MILLION UNITS (MU) LOADING DOSE FOLLOWED BY 3 MU 8 HOURLY, ROA: PARENTERAL
  2. MEROPENEM [Concomitant]
     Active Substance: MEROPENEM
     Indication: Acinetobacter infection
     Dosage: 1 G 8 HOURLY

REACTIONS (1)
  - Bartter^s syndrome [Recovered/Resolved]
